FAERS Safety Report 6187552-9 (Version None)
Quarter: 2009Q2

REPORT INFORMATION
  Report Type: 
  Country: None (occurrence: None)
  Receive Date: 20090508
  Receipt Date: 20090429
  Transmission Date: 20091009
  Serious: Yes (Life-Threatening, Other)
  Sender: FDA-Public Use
  Company Number: GXKR2009DE05278

PATIENT
  Age: 70 Year
  Sex: Female

DRUGS (5)
  1. METFORMIN HCL [Suspect]
     Dosage: 2.5 DF/DAILY, ORAL
     Route: 048
  2. SITAGLIPTIN (SITAGLIPTIN) [Suspect]
     Dosage: 100 MG/DAILY, ORAL
     Route: 048
  3. BISOPROLOL FUMARATE [Concomitant]
  4. BROMAZEPAM (BROMAZEPAM) [Concomitant]
  5. CITALOPRAM HYDROBROMIDE [Concomitant]

REACTIONS (3)
  - DEHYDRATION [None]
  - LACTIC ACIDOSIS [None]
  - RENAL FAILURE ACUTE [None]
